FAERS Safety Report 24381547 (Version 1)
Quarter: 2024Q4

REPORT INFORMATION
  Report Type: Spontaneous
  Country: US (occurrence: US)
  Receive Date: 20241001
  Receipt Date: 20241001
  Transmission Date: 20250115
  Serious: Yes (Other)
  Sender: AUROBINDO
  Company Number: US-AUROBINDO-AUR-APL-2024-047195

PATIENT
  Age: 79 Year
  Sex: Female

DRUGS (7)
  1. CLOBETASOL [Suspect]
     Active Substance: CLOBETASOL
     Indication: Langerhans^ cell histiocytosis
     Dosage: UNK
     Route: 061
  2. MECHLORETHAMINE [Suspect]
     Active Substance: MECHLORETHAMINE
     Indication: Langerhans^ cell histiocytosis
     Dosage: UNK
     Route: 061
  3. DESOXIMETASONE [Suspect]
     Active Substance: DESOXIMETASONE
     Indication: Langerhans^ cell histiocytosis
     Dosage: UNK
     Route: 061
  4. FLUOCINOLONE [Suspect]
     Active Substance: FLUOCINOLONE
     Indication: Langerhans^ cell histiocytosis
     Dosage: UNK
     Route: 061
  5. HYDROXYUREA [Suspect]
     Active Substance: HYDROXYUREA
     Indication: Langerhans^ cell histiocytosis
     Dosage: 500 MILLIGRAM
     Route: 065
  6. HYDROXYUREA [Suspect]
     Active Substance: HYDROXYUREA
     Dosage: 1000 MILLIGRAM
     Route: 065
  7. IMIQUIMOD [Suspect]
     Active Substance: IMIQUIMOD
     Indication: Langerhans^ cell histiocytosis
     Dosage: UNK
     Route: 061

REACTIONS (1)
  - Drug ineffective [Unknown]
